FAERS Safety Report 17532866 (Version 1)
Quarter: 2020Q1

REPORT INFORMATION
  Report Type: Spontaneous
  Country: CA (occurrence: CA)
  Receive Date: 20200312
  Receipt Date: 20200312
  Transmission Date: 20200409
  Serious: Yes (Other)
  Sender: FDA-Public Use
  Company Number: NVSC2020CA068610

PATIENT
  Age: 42 Year
  Sex: Male

DRUGS (4)
  1. COSENTYX [Suspect]
     Active Substance: SECUKINUMAB
     Dosage: 300 MG, QMO
     Route: 058
  2. COSENTYX [Suspect]
     Active Substance: SECUKINUMAB
     Indication: PSORIASIS
     Dosage: 300 MG, QW
     Route: 058
  3. SERTRALINE HYDROCHLORIDE. [Suspect]
     Active Substance: SERTRALINE HYDROCHLORIDE
     Indication: ANXIETY
     Dosage: UNK
     Route: 065
  4. ACITRETIN. [Concomitant]
     Active Substance: ACITRETIN
     Indication: PRODUCT USED FOR UNKNOWN INDICATION
     Dosage: UNK
     Route: 065

REACTIONS (16)
  - Post procedural swelling [Unknown]
  - Peripheral swelling [Unknown]
  - Vitamin D decreased [Unknown]
  - Fluid retention [Unknown]
  - Eyelid ptosis [Unknown]
  - Psoriasis [Unknown]
  - Weight increased [Unknown]
  - Oedema peripheral [Unknown]
  - Rash [Unknown]
  - Somnolence [Unknown]
  - Waist circumference increased [Unknown]
  - Hydrocele [Unknown]
  - Swelling [Unknown]
  - Therapeutic product effect incomplete [Unknown]
  - Impaired healing [Unknown]
  - Insomnia [Unknown]
